FAERS Safety Report 8837967 (Version 3)
Quarter: 2013Q1

REPORT INFORMATION
  Report Type: Spontaneous
  Country: US (occurrence: US)
  Receive Date: 20121012
  Receipt Date: 20130212
  Transmission Date: 20140127
  Serious: Yes (Death, Hospitalization)
  Sender: FDA-Public Use
  Company Number: US-B.I. PHARMACEUTICALS,INC./RIDGEFIELD-2012-BP-25371BP

PATIENT
  Age: 86 Year
  Sex: Male
  Weight: 87.09 kg

DRUGS (11)
  1. PRADAXA [Suspect]
     Indication: ATRIAL FIBRILLATION
     Dosage: 300 MG
     Route: 048
     Dates: start: 20110611, end: 20110828
  2. PRADAXA [Suspect]
     Indication: ANTICOAGULANT THERAPY
     Dosage: 150 MG
     Route: 048
     Dates: start: 20110829, end: 20120211
  3. PREVASTIN [Concomitant]
     Dates: start: 200803, end: 2012
  4. LISINOPRIL [Concomitant]
     Dates: start: 200806, end: 2012
  5. DIGOXIN [Concomitant]
     Dosage: 125 MCG
     Route: 048
     Dates: start: 200809, end: 2012
  6. ALLOPURINOL [Concomitant]
     Dosage: 100 MG
     Route: 048
     Dates: start: 200812, end: 2012
  7. ATENOLOL [Concomitant]
     Dosage: 50 MG
     Route: 048
     Dates: start: 201001, end: 2012
  8. NAPROXEN [Concomitant]
     Dosage: 500 MG
     Route: 048
  9. AMLODIPINE [Concomitant]
     Dosage: 5 MG
     Route: 048
  10. CENTRUM SILVER VITAMIN D [Concomitant]
     Route: 048
  11. TORSEMIDE [Concomitant]
     Dosage: 20 MG
     Route: 048

REACTIONS (4)
  - Cardio-respiratory arrest [Fatal]
  - Upper gastrointestinal haemorrhage [Unknown]
  - Coagulopathy [Unknown]
  - Myocardial infarction [Unknown]
